FAERS Safety Report 15868128 (Version 1)
Quarter: 2019Q1

REPORT INFORMATION
  Report Type: Spontaneous
  Country: NL (occurrence: NL)
  Receive Date: 20190125
  Receipt Date: 20190125
  Transmission Date: 20190417
  Serious: Yes (Other)
  Sender: FDA-Public Use
  Company Number: NL-PFIZER INC-2019030708

PATIENT
  Age: 57 Year
  Sex: Female

DRUGS (17)
  1. ATORVASTATINE [ATORVASTATIN] [Concomitant]
     Active Substance: ATORVASTATIN
     Dosage: 40 MG, 1X/DAY
     Route: 048
  2. GLIMEPIRIDE. [Concomitant]
     Active Substance: GLIMEPIRIDE
     Dosage: 1 MG, 1X/DAY
     Route: 048
  3. LEVOTHYROXINE. [Concomitant]
     Active Substance: LEVOTHYROXINE
     Dosage: 50 UG, 1X/DAY
     Route: 048
  4. SOMAVERT [Suspect]
     Active Substance: PEGVISOMANT
     Dosage: 40 MG, 2X/WEEK
     Route: 058
     Dates: start: 20081209
  5. PANTOPRAZOLE [Concomitant]
     Active Substance: PANTOPRAZOLE
     Dosage: 20 MG, 1X/DAY
     Route: 048
  6. SOMAVERT [Suspect]
     Active Substance: PEGVISOMANT
     Indication: ACROMEGALY
     Dosage: UNK
     Dates: start: 200311
  7. ACETYLSALICYLZUUR [Concomitant]
     Active Substance: ASPIRIN
     Dosage: 80 MG, 1X/DAY
     Route: 048
  8. DIPYRIDAMOL [Concomitant]
     Active Substance: DIPYRIDAMOLE
     Dosage: 150 MG, 2X/DAY
     Route: 048
  9. METFORMINE HCL [Concomitant]
     Active Substance: METFORMIN HYDROCHLORIDE
     Dosage: 500 MG, 1X/DAY
     Route: 048
  10. CLOPIDOGREL [Concomitant]
     Active Substance: CLOPIDOGREL BISULFATE
     Dosage: 75 MG, 1X/DAY
     Route: 048
  11. HYDROCORTISON ACETATE [Concomitant]
     Dosage: 5 MG, 1X/DAY
     Route: 048
  12. LANREOTIDE [Concomitant]
     Active Substance: LANREOTIDE
     Dosage: 120 MG, UNK
  13. OXAZEPAM. [Concomitant]
     Active Substance: OXAZEPAM
     Dosage: 10 MG, 1X/DAY AS NEEDED
     Route: 048
  14. FOLIUMZUUR [Concomitant]
     Active Substance: FOLIC ACID
     Dosage: 0.5 MG, 1X/DAY
     Route: 048
  15. METFORMINE HCL [Concomitant]
     Active Substance: METFORMIN HYDROCHLORIDE
     Dosage: 1000 MG, 2X/DAY
     Route: 048
  16. PERINDOPRIL/INDAPAMIDE [Concomitant]
     Active Substance: INDAPAMIDE\PERINDOPRIL
     Dosage: 1 DF, 1X/DAY
     Route: 048
  17. HYDROCORTISON ACETATE [Concomitant]
     Dosage: 20 MG, 1X/DAY
     Route: 048

REACTIONS (3)
  - Cerebrovascular accident [Unknown]
  - Peroneal nerve palsy [Unknown]
  - Product use issue [Unknown]

NARRATIVE: CASE EVENT DATE: 20081209
